FAERS Safety Report 5677080-9 (Version None)
Quarter: 2008Q1

REPORT INFORMATION
  Report Type: 
  Country: None (occurrence: None)
  Receive Date: 20080324
  Receipt Date: 20080314
  Transmission Date: 20080703
  Serious: Yes (Other)
  Sender: FDA-Public Use
  Company Number: DK-AVENTIS-200812379GDDC

PATIENT
  Age: 7 Year
  Sex: Female

DRUGS (1)
  1. DESMOMELT [Suspect]
     Indication: ENURESIS
     Route: 060
     Dates: start: 20071220, end: 20080201

REACTIONS (3)
  - DEPRESSION [None]
  - SELF ESTEEM DECREASED [None]
  - TEARFULNESS [None]
